FAERS Safety Report 14920657 (Version 3)
Quarter: 2018Q2

REPORT INFORMATION
  Report Type: Report from Study
  Country: JP (occurrence: JP)
  Receive Date: 20180521
  Receipt Date: 20180618
  Transmission Date: 20180711
  Serious: Yes (Death)
  Sender: FDA-Public Use
  Company Number: JP-DSJP-DSJ-2018-119281

PATIENT

DRUGS (14)
  1. EDOXABAN [Suspect]
     Active Substance: EDOXABAN TOSYLATE
     Indication: ATRIAL FIBRILLATION
     Dosage: 30 MG, QD
     Route: 048
     Dates: start: 20160929, end: 20161128
  2. HEPARIN [Concomitant]
     Active Substance: HEPARIN SODIUM
     Dosage: 10000IU/DAY
     Route: 042
     Dates: start: 20170119, end: 20170125
  3. MAINTATE [Concomitant]
     Active Substance: BISOPROLOL FUMARATE
     Indication: ATRIAL FIBRILLATION
     Dosage: 1.25MG/DAY
     Route: 048
     Dates: start: 20170105, end: 20170114
  4. ADETPHOS [Concomitant]
     Active Substance: ADENOSINE TRIPHOSPHATE
     Dosage: 3G/DAY
     Route: 048
     Dates: end: 20170110
  5. EDOXABAN [Suspect]
     Active Substance: EDOXABAN TOSYLATE
     Dosage: 60 MG, QD
     Route: 048
     Dates: start: 20161129, end: 20170119
  6. WARFARIN                           /00014803/ [Concomitant]
     Active Substance: WARFARIN
     Dosage: 3MG/DAY
     Route: 048
     Dates: start: 20170120, end: 20170225
  7. NEXIUM [Concomitant]
     Active Substance: ESOMEPRAZOLE MAGNESIUM
     Dosage: 20MG/DAY
     Route: 048
     Dates: end: 20170110
  8. LIMAPROST ALFADEX [Concomitant]
     Active Substance: LIMAPROST
     Dosage: 15MG/DAY
     Route: 048
     Dates: end: 20170110
  9. LYRICA [Concomitant]
     Active Substance: PREGABALIN
     Dosage: 75MG/DAY
     Route: 048
     Dates: end: 20170110
  10. MAINTATE [Concomitant]
     Active Substance: BISOPROLOL FUMARATE
     Dosage: 0.625MG/DAY
     Route: 048
     Dates: start: 20170116, end: 20170225
  11. DEANOSART [Concomitant]
     Dosage: 18MG/DAY
     Route: 048
     Dates: end: 20170110
  12. HANGEKOBOKUTO                      /07984801/ [Concomitant]
     Dosage: 7.5G/DAY
     Route: 048
     Dates: end: 20170110
  13. MECOBALAMIN [Concomitant]
     Active Substance: METHYLCOBALAMIN
     Dosage: 1.5MG/DAY
     Route: 048
     Dates: end: 20170110
  14. ETIZOLAM [Concomitant]
     Active Substance: ETIZOLAM
     Dosage: 0.5MG/DAY
     Route: 048
     Dates: end: 20170110

REACTIONS (1)
  - Interstitial lung disease [Fatal]

NARRATIVE: CASE EVENT DATE: 20170112
